FAERS Safety Report 10373691 (Version 1)
Quarter: 2014Q1

REPORT INFORMATION
  Report Type: Spontaneous
  Country: US (occurrence: None)
  Receive Date: 20140306
  Receipt Date: 20140306
  Transmission Date: 20141002
  Serious: Yes (Other)
  Sender: FDA-Public Use
  Company Number: 163-21880-13090385

PATIENT
  Age: 64 Year
  Sex: Female
  Weight: 99.79 kg

DRUGS (9)
  1. REVLIMID (LENALIDOMIDE) (25 MILLIGRAM, CAPSULES) [Suspect]
     Indication: PLASMA CELL MYELOMA
     Dosage: 19-AUG-2013 - ON HOLD
     Route: 048
     Dates: start: 20130819
  2. HYZAAR (HYZAAR) (TABLETS) [Concomitant]
  3. METFORMIN HCL (METFORMIN HYDROCHLORIDE) (UNKNOWN) [Concomitant]
  4. CARVEDILOL (CARVEDILOL) (TABLETS) [Concomitant]
  5. GLYBURIDE (GLIBENCLAMIDE) (TABLETS) [Concomitant]
  6. FISH OIL (FISH OIL) (CAPSULES) [Concomitant]
  7. CALCIUM 500 (UNKNOWN) [Concomitant]
  8. MULTIVITAMINS (MULTIVITAMINS) (CAPSULES) [Concomitant]
  9. COQ10 (UBIDECARENONE) (CAPSULES) [Concomitant]

REACTIONS (2)
  - Unevaluable event [None]
  - Rash [None]
